FAERS Safety Report 4740607-5 (Version None)
Quarter: 2005Q3

REPORT INFORMATION
  Report Type: 
  Country: None (occurrence: None)
  Receive Date: 20050809
  Receipt Date: 20050809
  Transmission Date: 20060218
  Serious: Yes (Hospitalization)
  Sender: FDA-Public Use
  Company Number: None

PATIENT
  Sex: Female
  Weight: 56.6996 kg

DRUGS (1)
  1. TUBERCULIN    5 TU/0.1 ML     PARKEDALE [Suspect]
     Indication: TUBERCULIN TEST
     Dosage: 0.1 ML  ANNUAL  TRANSDERMA
     Route: 062
     Dates: start: 20050718, end: 20050718

REACTIONS (1)
  - AXILLARY PAIN [None]
